FAERS Safety Report 10238429 (Version 1)
Quarter: 2014Q2

REPORT INFORMATION
  Report Type: Spontaneous
  Country: US (occurrence: None)
  Receive Date: 20140613
  Receipt Date: 20140613
  Transmission Date: 20141212
  Serious: Yes (Other)
  Sender: FDA-Public Use
  Company Number: None

PATIENT
  Age: 54 Year
  Sex: Male
  Weight: 60.78 kg

DRUGS (1)
  1. WARFARIN 5MG [Suspect]
     Indication: ATRIAL FIBRILLATION
     Dosage: 5 MG  1-3 QD  ORAL
     Route: 048

REACTIONS (3)
  - Product substitution issue [None]
  - International normalised ratio fluctuation [None]
  - Prothrombin time abnormal [None]
